FAERS Safety Report 5623676-X (Version None)
Quarter: 2008Q1

REPORT INFORMATION
  Report Type: 
  Country: None (occurrence: None)
  Receive Date: 20080212
  Receipt Date: 20080201
  Transmission Date: 20080703
  Serious: Yes (Hospitalization)
  Sender: FDA-Public Use
  Company Number: US-ELI_LILLY_AND_COMPANY-US200802000522

PATIENT
  Age: 77 Year
  Sex: Female

DRUGS (3)
  1. CYMBALTA [Suspect]
     Dosage: 30 MG, DAILY (1/D)
     Dates: start: 20080128, end: 20080129
  2. LEXAPRO [Concomitant]
  3. BENZODIAZEPINE DERIVATIVES [Concomitant]

REACTIONS (1)
  - CEREBROVASCULAR ACCIDENT [None]
